FAERS Safety Report 6609939-X (Version None)
Quarter: 2010Q1

REPORT INFORMATION
  Report Type: 
  Country: None (occurrence: None)
  Receive Date: 20100302
  Receipt Date: 20100222
  Transmission Date: 20100710
  Serious: Yes (Hospitalization)
  Sender: FDA-Public Use
  Company Number: PHHO2010FR02968

PATIENT
  Sex: Male

DRUGS (4)
  1. CERTICAN [Suspect]
     Indication: RENAL TRANSPLANT
     Dosage: 3MG/DAY
     Route: 048
     Dates: start: 20091103
  2. NEORAL [Suspect]
     Indication: RENAL TRANSPLANT
     Dosage: 85
     Route: 048
  3. MYCOPHENOLIC ACID [Suspect]
     Indication: RENAL TRANSPLANT
     Dosage: UNK
     Route: 048
  4. SOLUPRED [Concomitant]

REACTIONS (1)
  - NEUTROPENIA [None]
